FAERS Safety Report 10088306 (Version 1)
Quarter: 2014Q2

REPORT INFORMATION
  Report Type: Spontaneous
  Country: GB (occurrence: GB)
  Receive Date: 20140421
  Receipt Date: 20140421
  Transmission Date: 20141212
  Serious: Yes (Other)
  Sender: FDA-Public Use
  Company Number: GB-MERCK-1404GBR010584

PATIENT
  Age: 75 Year
  Sex: Male
  Weight: 56.24 kg

DRUGS (6)
  1. FOSAMAX [Suspect]
     Indication: OSTEOPOROSIS
     Dosage: 70 MG, QW
     Route: 048
     Dates: start: 20131014, end: 20140401
  2. ADCAL-D3 [Suspect]
     Indication: OSTEOPOROSIS
     Dosage: 750 MG, QID
     Route: 048
     Dates: start: 20131105, end: 20140401
  3. ACETAMINOPHEN (+) DIHYDROCODEINE BITARTRATE [Concomitant]
     Indication: PAIN
     Dosage: 3 DF, QD
  4. COLCHICINE [Concomitant]
     Dosage: 500 MG, QD
  5. PREDNISOLONE [Concomitant]
     Indication: OSTEOPOROSIS
     Dosage: 2 MG, QD
     Dates: start: 1976
  6. DIDRONEL [Concomitant]
     Indication: OSTEOPOROSIS
     Dosage: UNK
     Dates: end: 2013

REACTIONS (2)
  - Faecaloma [Not Recovered/Not Resolved]
  - Constipation [Not Recovered/Not Resolved]
